FAERS Safety Report 4507854-9 (Version None)
Quarter: 2004Q4

REPORT INFORMATION
  Report Type: 
  Country: None (occurrence: None)
  Receive Date: 20041123
  Receipt Date: 20041117
  Transmission Date: 20050328
  Serious: Yes (Other)
  Sender: FDA-Public Use
  Company Number: PHNU2004DE03897

PATIENT

DRUGS (7)
  1. CO-DIOVAN [Suspect]
     Dates: start: 20031001
  2. CELEBREX [Concomitant]
  3. PROGYNOVA [Concomitant]
  4. ATORVASTATIN CALCIUM [Concomitant]
  5. VIOXX [Concomitant]
  6. ALLEGRO [Concomitant]
  7. TETHEXAL [Concomitant]

REACTIONS (2)
  - CERVICOBRACHIAL SYNDROME [None]
  - TINNITUS [None]
